FAERS Safety Report 8942348 (Version 1)
Quarter: 2012Q4

REPORT INFORMATION
  Report Type: Spontaneous
  Country: US (occurrence: None)
  Receive Date: 20121123
  Receipt Date: 20121123
  Transmission Date: 20130627
  Serious: Yes (Other)
  Sender: FDA-Public Use
  Company Number: DKLU1086450

PATIENT

DRUGS (2)
  1. ONFI [Suspect]
     Indication: LENNOX-GASTAUT SYNDROME
  2. KLONOPIN [Concomitant]

REACTIONS (2)
  - Grand mal convulsion [None]
  - Convulsion [None]
